FAERS Safety Report 9235740 (Version 2)
Quarter: 2013Q2

REPORT INFORMATION
  Report Type: Spontaneous
  Country: US (occurrence: None)
  Receive Date: 20121031
  Receipt Date: 20130107
  Transmission Date: 20140414
  Serious: No
  Sender: FDA-Public Use
  Company Number: PHEH2012US013546

PATIENT
  Age: 38 Year
  Sex: Female
  Weight: 62.6 kg

DRUGS (9)
  1. GILENYA [Suspect]
     Indication: MULTIPLE SCLEROSIS
     Route: 048
     Dates: start: 20120627
  2. PSORCON (DIFLORASONE DIACETATE)OINTMENT [Concomitant]
  3. MAXAIR (PIRBUTEROL ACETATE)AERSOL [Concomitant]
  4. PRILOSEC (OMEPRAZOLE)CAPSULE [Concomitant]
  5. CLARATIN (LORATADINE) [Concomitant]
  6. VITAMIN D ERGOCALCIFEROL) [Concomitant]
  7. ALEVE (NAPROXEN SODIUM) [Concomitant]
  8. CALCIUM W/VITAMINS D NOS (CACLIUM, VITAMINS NOS) [Concomitant]
  9. MULTIVITAMIN (VITAMINS NOS) [Concomitant]

REACTIONS (2)
  - Decreased appetite [None]
  - Palpitations [None]
